FAERS Safety Report 18067941 (Version 4)
Quarter: 2021Q1

REPORT INFORMATION
  Report Type: Spontaneous
  Country: JP (occurrence: JP)
  Receive Date: 20200724
  Receipt Date: 20210309
  Transmission Date: 20210419
  Serious: Yes (Death, Hospitalization, Other)
  Sender: FDA-Public Use
  Company Number: JP-BRISTOL-MYERS SQUIBB COMPANY-BMS-2019-098837

PATIENT
  Age: 65 Year
  Sex: Female
  Weight: 36.2 kg

DRUGS (4)
  1. OPDIVO [Suspect]
     Active Substance: NIVOLUMAB
     Indication: HEAD AND NECK CANCER
     Dosage: 240 MILLIGRAM
     Route: 041
     Dates: start: 20190625, end: 20200512
  2. PREDNISOLONE. [Suspect]
     Active Substance: PREDNISOLONE
     Indication: STEVENS-JOHNSON SYNDROME
     Dosage: 20 MILLIGRAM
     Route: 065
     Dates: start: 20191008
  3. L?CARBOCISTEINE [Suspect]
     Active Substance: CARBOCYSTEINE
     Indication: PRODUCT USED FOR UNKNOWN INDICATION
     Dosage: UNK
     Route: 065
     Dates: start: 20190903
  4. PREDONINE [PREDNISOLONE ACETATE] [Concomitant]
     Active Substance: PREDNISOLONE ACETATE
     Indication: PRODUCT USED FOR UNKNOWN INDICATION
     Dosage: UNK
     Route: 065

REACTIONS (13)
  - Blood thyroid stimulating hormone increased [Recovering/Resolving]
  - Eye pruritus [Recovering/Resolving]
  - Enanthema [Unknown]
  - Keratitis [Recovering/Resolving]
  - Oral mucosa erosion [Recovering/Resolving]
  - Blood corticotrophin increased [Recovering/Resolving]
  - Erythema multiforme [Unknown]
  - Obstructive airways disorder [Fatal]
  - Drug eruption [Unknown]
  - Influenza [Unknown]
  - Hypozincaemia [Not Recovered/Not Resolved]
  - Erythema [Recovering/Resolving]
  - Rash [Recovering/Resolving]

NARRATIVE: CASE EVENT DATE: 201909
